FAERS Safety Report 5034632-7 (Version None)
Quarter: 2006Q2

REPORT INFORMATION
  Report Type: 
  Country: None (occurrence: None)
  Receive Date: 20060626
  Receipt Date: 20060621
  Transmission Date: 20061013
  Serious: Yes (Hospitalization)
  Sender: FDA-Public Use
  Company Number: US-MERCK-0606USA04259

PATIENT
  Age: 72 Year
  Sex: Female

DRUGS (12)
  1. VYTORIN [Suspect]
     Indication: BLOOD CHOLESTEROL INCREASED
     Route: 048
     Dates: start: 20040601
  2. GLUCOPHAGE [Concomitant]
     Route: 065
  3. ATENOLOL [Concomitant]
     Route: 065
  4. NORVASC [Concomitant]
     Route: 065
  5. AVANDIA [Concomitant]
     Route: 065
  6. MOBIC [Concomitant]
     Route: 065
  7. GLUCOVANCE [Concomitant]
     Route: 065
  8. ASPIRIN [Concomitant]
     Route: 065
  9. SINGULAIR [Concomitant]
     Route: 048
  10. [THERAPY UNSPECIFIED] [Concomitant]
     Route: 065
  11. NIASPAN [Concomitant]
     Route: 065
  12. ATACAND [Concomitant]
     Route: 065

REACTIONS (3)
  - MYALGIA [None]
  - TENDON DISORDER [None]
  - TENDON RUPTURE [None]
